FAERS Safety Report 9606332 (Version 1)
Quarter: 2013Q4

REPORT INFORMATION
  Report Type: Spontaneous
  Country: US (occurrence: US)
  Receive Date: 20131008
  Receipt Date: 20131008
  Transmission Date: 20140711
  Serious: No
  Sender: FDA-Public Use
  Company Number: US-AMGEN-USASP2013050062

PATIENT
  Age: 91 Year
  Sex: Female

DRUGS (9)
  1. PROLIA [Suspect]
     Indication: OSTEOPOROSIS POSTMENOPAUSAL
     Dosage: UNK
     Dates: start: 20130501
  2. TYLENOL                            /00020001/ [Concomitant]
  3. FISH OIL [Concomitant]
  4. CENTRUM SILVER                     /02363801/ [Concomitant]
  5. VITAMIN C                          /00008001/ [Concomitant]
  6. MAGNESIUM [Concomitant]
  7. VITAMIN B [Concomitant]
  8. CALCIUM [Concomitant]
     Dosage: 1200 MG, UNK
  9. VITAMIN D                          /00107901/ [Concomitant]
     Dosage: 200 MG, UNK

REACTIONS (5)
  - Pain [Not Recovered/Not Resolved]
  - Groin pain [Not Recovered/Not Resolved]
  - Mobility decreased [Unknown]
  - Musculoskeletal stiffness [Unknown]
  - Pain in extremity [Not Recovered/Not Resolved]
